FAERS Safety Report 8621867-7 (Version None)
Quarter: 2012Q3

REPORT INFORMATION
  Report Type: 
  Country: None (occurrence: None)
  Receive Date: 20120822
  Receipt Date: 20120822
  Transmission Date: 20120928
  Serious: Yes (Other)
  Sender: FDA-Public Use
  Company Number: None

PATIENT
  Age: 45 Year
  Sex: Female
  Weight: 77.5651 kg

DRUGS (1)
  1. CIPROFLOXACIN [Suspect]
     Indication: VAGINITIS BACTERIAL
     Dosage: 1 BID OROPHARINGEAL
     Route: 049
     Dates: start: 20120810, end: 20120816

REACTIONS (2)
  - WEIGHT BEARING DIFFICULTY [None]
  - ARTHRALGIA [None]
